FAERS Safety Report 5677486-8 (Version None)
Quarter: 2008Q1

REPORT INFORMATION
  Report Type: 
  Country: None (occurrence: None)
  Receive Date: 20080324
  Receipt Date: 20080319
  Transmission Date: 20080703
  Serious: Yes (Other)
  Sender: FDA-Public Use
  Company Number: US-ABBOTT-08P-163-0443476-00

PATIENT
  Sex: Male

DRUGS (2)
  1. RITONAVIR SOFT GELATIN CAPSULES [Suspect]
     Indication: DRUG USE FOR UNKNOWN INDICATION
     Dosage: TPV/RTV 250/100 MG
     Route: 048
  2. APTIVUS [Suspect]
     Indication: DRUG USE FOR UNKNOWN INDICATION
     Dosage: TPV/RTV 250/100 MG
     Route: 048

REACTIONS (1)
  - EMBOLISM [None]
